FAERS Safety Report 4907612-7 (Version None)
Quarter: 2006Q1

REPORT INFORMATION
  Report Type: 
  Country: None (occurrence: None)
  Receive Date: 20060210
  Receipt Date: 20041222
  Transmission Date: 20060701
  Serious: Yes (Death, Hospitalization)
  Sender: FDA-Public Use
  Company Number: US-MERCK-0412USA02794

PATIENT
  Age: 72 Year
  Sex: Male
  Weight: 79 kg

DRUGS (2)
  1. VIOXX [Suspect]
     Indication: CAUDA EQUINA SYNDROME
     Route: 048
     Dates: start: 20020901, end: 20021001
  2. VIOXX [Suspect]
     Indication: PAIN
     Route: 048
     Dates: start: 20020901, end: 20021001

REACTIONS (19)
  - ASTHENIA [None]
  - ATRIAL FIBRILLATION [None]
  - AZOTAEMIA [None]
  - CARDIAC ARREST [None]
  - CARDIAC FAILURE CONGESTIVE [None]
  - CHRONIC OBSTRUCTIVE PULMONARY DISEASE [None]
  - DYSPNOEA [None]
  - ENCEPHALOPATHY [None]
  - FLUID OVERLOAD [None]
  - HYPERTENSION [None]
  - ISCHAEMIC CARDIOMYOPATHY [None]
  - LUNG NEOPLASM [None]
  - MALAISE [None]
  - MENTAL STATUS CHANGES [None]
  - MYOCARDIAL INFARCTION [None]
  - NON-SMALL CELL LUNG CANCER RECURRENT [None]
  - PARAESTHESIA [None]
  - PROSTATISM [None]
  - RENAL FAILURE [None]
